FAERS Safety Report 22345712 (Version 2)
Quarter: 2024Q1

REPORT INFORMATION
  Report Type: Report from Study
  Country: US (occurrence: US)
  Receive Date: 20230519
  Receipt Date: 20240129
  Transmission Date: 20240409
  Serious: Yes (Hospitalization)
  Sender: FDA-Public Use
  Company Number: US-PFIZER INC-US-GBT-022057

PATIENT
  Age: 25 Year
  Sex: Male

DRUGS (9)
  1. VOXELOTOR [Suspect]
     Active Substance: VOXELOTOR
     Indication: Sickle cell disease
     Dosage: 1500 MG, 1X/DAY
     Dates: start: 20200109
  2. VOXELOTOR [Suspect]
     Active Substance: VOXELOTOR
     Indication: Prophylaxis
  3. VOXELOTOR [Suspect]
     Active Substance: VOXELOTOR
     Indication: Anaemia
  4. BUTRANS [Concomitant]
     Active Substance: BUPRENORPHINE
     Indication: Sickle cell disease
     Dosage: 1 PATCH; APPLY 1 PATCH EVERY WEEK
     Route: 062
     Dates: start: 20220629
  5. GABAPENTIN [Concomitant]
     Active Substance: GABAPENTIN
     Indication: Sickle cell disease
     Dosage: 800 MG, 3X/DAY
     Route: 048
     Dates: start: 20211220
  6. GLUTAMINE [LEVOGLUTAMIDE] [Concomitant]
     Indication: Sickle cell disease
     Dosage: 10 G, 2X/DAY
     Route: 048
     Dates: start: 20190603
  7. HYDROXYUREA [Concomitant]
     Active Substance: HYDROXYUREA
     Indication: Sickle cell disease
     Dosage: 1500 MG, 1X/DAY
     Route: 048
     Dates: start: 20160926
  8. OXYCODONE [Concomitant]
     Active Substance: OXYCODONE\OXYCODONE HYDROCHLORIDE
     Indication: Sickle cell disease
     Dosage: 30 MG, Q4H PRN
     Route: 048
     Dates: start: 20211220
  9. VITAMIN D2 [Concomitant]
     Active Substance: ERGOCALCIFEROL
     Indication: Vitamin D deficiency
     Dosage: 50000 IU, EVERY 14 DAYS
     Route: 048

REACTIONS (2)
  - Pain [Recovered/Resolved]
  - Acute chest syndrome [Recovered/Resolved]

NARRATIVE: CASE EVENT DATE: 20230424
